FAERS Safety Report 4588123-8 (Version None)
Quarter: 2005Q1

REPORT INFORMATION
  Report Type: 
  Country: None (occurrence: None)
  Receive Date: 20050216
  Receipt Date: 20050205
  Transmission Date: 20050727
  Serious: Yes (Life-Threatening, Hospitalization)
  Sender: FDA-Public Use
  Company Number: TMDP-NO-0502S-0002

PATIENT
  Age: 70 Year
  Sex: Female
  Weight: 55 kg

DRUGS (7)
  1. AMERSCAN MEDRONATE II AGENT (TECHNETIUM TC99M MEDRONATE) [Suspect]
     Indication: COMPLEX REGIONAL PAIN SYNDROME
     Dosage: 925 MBQ, SINGLE DOSE, I.V.
     Route: 042
     Dates: start: 20041125, end: 20041125
  2. TECHNETIUM (TC99M) GENERATOR (DRYTEC) [Concomitant]
  3. IBUPROFEN [Concomitant]
  4. CALCITONIN [Concomitant]
  5. LANSOPRAZOLE (OPIREN) [Concomitant]
  6. PARACETAMOL [Concomitant]
  7. TRAMADOL HCL [Concomitant]

REACTIONS (2)
  - ANAPHYLACTOID SHOCK [None]
  - POST PROCEDURAL COMPLICATION [None]
